FAERS Safety Report 19939616 (Version 1)
Quarter: 2021Q4

REPORT INFORMATION
  Report Type: Spontaneous
  Country: CN (occurrence: CN)
  Receive Date: 20211011
  Receipt Date: 20211011
  Transmission Date: 20220303
  Serious: Yes (Hospitalization)
  Sender: FDA-Public Use
  Company Number: CN-PFIZER INC-202101282250

PATIENT
  Age: 25 Year
  Sex: Female
  Weight: 51.3 kg

DRUGS (3)
  1. SOLU-MEDROL [Suspect]
     Active Substance: METHYLPREDNISOLONE SODIUM SUCCINATE
     Indication: Systemic lupus erythematosus
     Dosage: 40 MG, TWICE A DAY
     Route: 041
     Dates: start: 20210604, end: 20210613
  2. CYCLOSPORINE [Suspect]
     Active Substance: CYCLOSPORINE
     Indication: Systemic lupus erythematosus
     Dosage: 25 MG, TWICE A DAY
     Route: 048
     Dates: start: 20210608, end: 20210614
  3. HYDROXYCHLOROQUINE SULFATE [Suspect]
     Active Substance: HYDROXYCHLOROQUINE SULFATE
     Indication: Systemic lupus erythematosus
     Dosage: 0.1 G, ONCE A DAY
     Route: 048
     Dates: start: 20210604, end: 20210717

REACTIONS (8)
  - Immune system disorder [Recovering/Resolving]
  - Parotitis [Recovering/Resolving]
  - Pneumonia [Recovering/Resolving]
  - Sepsis [Recovering/Resolving]
  - Systemic lupus erythematosus [Recovering/Resolving]
  - Full blood count decreased [Recovering/Resolving]
  - Condition aggravated [Recovering/Resolving]
  - Renal impairment [Recovering/Resolving]

NARRATIVE: CASE EVENT DATE: 20210601
